FAERS Safety Report 20897840 (Version 5)
Quarter: 2022Q3

REPORT INFORMATION
  Report Type: Spontaneous
  Country: US (occurrence: US)
  Receive Date: 20220531
  Receipt Date: 20220707
  Transmission Date: 20221027
  Serious: Yes (Other)
  Sender: FDA-Public Use
  Company Number: US-PFIZER INC-202200766674

PATIENT
  Age: 53 Year
  Sex: Female
  Weight: 105.23 kg

DRUGS (3)
  1. PAXLOVID [Suspect]
     Active Substance: NIRMATRELVIR\RITONAVIR
     Indication: COVID-19 treatment
     Dosage: [PF-07321332 300 MG]/[RITONAVIR 100 MG]; 2X/DAY
     Dates: start: 20220524, end: 20220526
  2. IBUPROFEN [Concomitant]
     Active Substance: IBUPROFEN
     Indication: Back pain
     Dosage: UNK
  3. NAPROXEN [Concomitant]
     Active Substance: NAPROXEN
     Indication: Back pain
     Dosage: UNK

REACTIONS (8)
  - Toxicity to various agents [Unknown]
  - Feeling abnormal [Unknown]
  - Dysgeusia [Unknown]
  - Eye irritation [Unknown]
  - Ocular hyperaemia [Unknown]
  - Malaise [Unknown]
  - Fatigue [Unknown]
  - Vomiting [Not Recovered/Not Resolved]

NARRATIVE: CASE EVENT DATE: 20220501
